FAERS Safety Report 18462104 (Version 2)
Quarter: 2020Q4

REPORT INFORMATION
  Report Type: Report from Study
  Country: US (occurrence: US)
  Receive Date: 20201104
  Receipt Date: 20201218
  Transmission Date: 20210114
  Serious: Yes (Death, Other)
  Sender: FDA-Public Use
  Company Number: NVSC2020US291606

PATIENT
  Age: 17 Year
  Sex: Female

DRUGS (4)
  1. KYMRIAH [Suspect]
     Active Substance: TISAGENLECLEUCEL
     Dosage: UNK
     Route: 065
     Dates: start: 20200811
  2. FLUDARABINE [Concomitant]
     Active Substance: FLUDARABINE PHOSPHATE
     Indication: PRODUCT USED FOR UNKNOWN INDICATION
     Dosage: UNK
     Route: 065
  3. KYMRIAH [Suspect]
     Active Substance: TISAGENLECLEUCEL
     Indication: ACUTE LYMPHOCYTIC LEUKAEMIA
     Dosage: UNK
     Route: 065
     Dates: start: 20200427
  4. CYCLOPHOSPHAMIDE. [Concomitant]
     Active Substance: CYCLOPHOSPHAMIDE
     Indication: PRODUCT USED FOR UNKNOWN INDICATION
     Dosage: UNK
     Route: 065

REACTIONS (17)
  - Malignant neoplasm progression [Fatal]
  - Thrombocytopenia [Unknown]
  - Cytokine release syndrome [Unknown]
  - White blood cell count decreased [Unknown]
  - Haematocrit decreased [Unknown]
  - Hypoxia [Unknown]
  - Recurrent cancer [Fatal]
  - Lymphocyte count decreased [Unknown]
  - Staphylococcal infection [Unknown]
  - Neutropenia [Unknown]
  - Hypotension [Unknown]
  - Haemoglobin decreased [Unknown]
  - Pyrexia [Unknown]
  - Treatment failure [Unknown]
  - Off label use [Unknown]
  - B-cell type acute leukaemia [Fatal]
  - Cytopenia [Unknown]
